FAERS Safety Report 4459089-6 (Version None)
Quarter: 2004Q3

REPORT INFORMATION
  Report Type: 
  Country: None (occurrence: None)
  Receive Date: 20040920
  Receipt Date: 20040920
  Transmission Date: 20050211
  Serious: Yes (Hospitalization)
  Sender: FDA-Public Use
  Company Number: None

PATIENT
  Age: 72 Year
  Sex: Male

DRUGS (12)
  1. HEPARIN [Suspect]
     Dosage: 25000 UNITS IV
     Route: 042
     Dates: start: 20040516, end: 20040522
  2. METRONIDAZOLE [Concomitant]
  3. METOPROLOL [Concomitant]
  4. GEOGEN [Concomitant]
  5. CEFIPIME [Concomitant]
  6. APAP TAB [Concomitant]
  7. LORAZEPAM [Concomitant]
  8. FENTANYL [Concomitant]
  9. DILTIAZEM [Concomitant]
  10. MORPHINE SULFATE [Concomitant]
  11. MIDAZOLAM HCL [Concomitant]
  12. FUROSEMIDE [Concomitant]

REACTIONS (5)
  - ACTIVATED PARTIAL THROMBOPLASTIN TIME PROLONGED [None]
  - ATRIAL FIBRILLATION [None]
  - GASTROINTESTINAL HAEMORRHAGE [None]
  - INTERNATIONAL NORMALISED RATIO DECREASED [None]
  - PROTHROMBIN TIME PROLONGED [None]
